FAERS Safety Report 24108965 (Version 2)
Quarter: 2025Q3

REPORT INFORMATION
  Report Type: Other
  Country: GB (occurrence: GB)
  Receive Date: 20240718
  Receipt Date: 20250709
  Transmission Date: 20251021
  Serious: Yes (Death, Other)
  Sender: MACLEODS
  Company Number: None

PATIENT

DRUGS (1)
  1. DONEPEZIL [Suspect]
     Active Substance: DONEPEZIL
     Indication: Product used for unknown indication
     Route: 048

REACTIONS (2)
  - Death [Fatal]
  - Bradycardia [Recovered/Resolved]
